FAERS Safety Report 8126987-1 (Version None)
Quarter: 2012Q1

REPORT INFORMATION
  Report Type: 
  Country: None (occurrence: None)
  Receive Date: 20120210
  Receipt Date: 20120202
  Transmission Date: 20120608
  Serious: Yes (Hospitalization)
  Sender: FDA-Public Use
  Company Number: US-JNJFOC-20120201942

PATIENT
  Sex: Male
  Weight: 72.58 kg

DRUGS (6)
  1. LIPITOR [Concomitant]
     Indication: BLOOD PRESSURE
     Route: 048
     Dates: start: 20020101
  2. DURAGESIC-100 [Suspect]
     Route: 062
     Dates: start: 20110101, end: 20110101
  3. DURAGESIC-100 [Suspect]
     Indication: PAIN
     Route: 062
     Dates: start: 20111001, end: 20111101
  4. LIPITOR [Concomitant]
     Indication: BLOOD CHOLESTEROL
     Route: 048
     Dates: start: 20020101
  5. DURAGESIC-100 [Suspect]
     Route: 062
     Dates: start: 20111101
  6. DURAGESIC-100 [Suspect]
     Route: 062
     Dates: start: 20100101, end: 20110101

REACTIONS (8)
  - WRONG TECHNIQUE IN DRUG USAGE PROCESS [None]
  - DRUG EFFECT INCREASED [None]
  - MYOCARDIAL INFARCTION [None]
  - HAEMOGLOBIN DECREASED [None]
  - AGITATION [None]
  - WEIGHT INCREASED [None]
  - PAIN [None]
  - HYPOTENSION [None]
